FAERS Safety Report 19237153 (Version 1)
Quarter: 2021Q2

REPORT INFORMATION
  Report Type: Spontaneous
  Country: US (occurrence: US)
  Receive Date: 20210508
  Receipt Date: 20210508
  Transmission Date: 20210717
  Serious: No
  Sender: FDA-Public Use
  Company Number: None

PATIENT
  Age: 20 Year
  Sex: Male
  Weight: 90 kg

DRUGS (2)
  1. ZYTEC [Concomitant]
  2. DEXMETHYLPHENIDATE HYDROCHLORIDE EXTENDED RELEASE CAPSULES 25 MG [Suspect]
     Active Substance: DEXMETHYLPHENIDATE HYDROCHLORIDE
     Indication: ATTENTION DEFICIT HYPERACTIVITY DISORDER
     Dosage: ?          QUANTITY:60 CAPSULE(S);?
     Route: 048
     Dates: start: 20210418, end: 20210501

REACTIONS (4)
  - Psychomotor hyperactivity [None]
  - Condition aggravated [None]
  - Disturbance in attention [None]
  - Product substitution issue [None]

NARRATIVE: CASE EVENT DATE: 20210508
